FAERS Safety Report 19455301 (Version 2)
Quarter: 2021Q3

REPORT INFORMATION
  Report Type: Report from Study
  Country: CA (occurrence: CA)
  Receive Date: 20210623
  Receipt Date: 20210706
  Transmission Date: 20211014
  Serious: Yes (Hospitalization, Other)
  Sender: FDA-Public Use
  Company Number: NVSC2021CA136514

PATIENT
  Age: 46 Year
  Sex: Male
  Weight: 78.6 kg

DRUGS (3)
  1. PREDNISONE. [Suspect]
     Active Substance: PREDNISONE
     Indication: CHRONIC GRAFT VERSUS HOST DISEASE
     Dosage: 50 MG, QD
     Route: 065
     Dates: start: 20200917, end: 20210219
  2. TACROLIMUS. [Concomitant]
     Active Substance: TACROLIMUS
     Indication: CHRONIC GRAFT VERSUS HOST DISEASE
     Dosage: 1 MG, BID
     Route: 065
     Dates: start: 20210115, end: 20210219
  3. JAKAVI [Suspect]
     Active Substance: RUXOLITINIB
     Indication: CHRONIC GRAFT VERSUS HOST DISEASE
     Dosage: 10 MG, BID
     Route: 048
     Dates: start: 20201201, end: 20210219

REACTIONS (8)
  - Steroid diabetes [Not Recovered/Not Resolved]
  - Dyspnoea [Not Recovered/Not Resolved]
  - Decreased appetite [Recovered/Resolved]
  - Obstructive airways disorder [Not Recovered/Not Resolved]
  - Fungal infection [Not Recovered/Not Resolved]
  - Graft versus host disease [Not Recovered/Not Resolved]
  - Cough [Recovered/Resolved]
  - Weight decreased [Recovered/Resolved]

NARRATIVE: CASE EVENT DATE: 20201030
